FAERS Safety Report 18775573 (Version 1)
Quarter: 2021Q1

REPORT INFORMATION
  Report Type: Spontaneous
  Country: NL (occurrence: NL)
  Receive Date: 20210122
  Receipt Date: 20210122
  Transmission Date: 20210419
  Serious: Yes (Hospitalization)
  Sender: FDA-Public Use
  Company Number: NVSC2021NL013566

PATIENT
  Sex: Female
  Weight: 78 kg

DRUGS (5)
  1. AMLODIPINE [Concomitant]
     Active Substance: AMLODIPINE BESYLATE
     Indication: PRODUCT USED FOR UNKNOWN INDICATION
     Dosage: TABLET, 10 MG (MILLIGRAM)
     Route: 065
  2. LISINOPRIL. [Suspect]
     Active Substance: LISINOPRIL
     Indication: HYPERTENSION
     Dosage: 5 MG, QD, 1D1T
     Route: 065
     Dates: start: 20201209, end: 20210101
  3. CHOLECALCIFEROL [Concomitant]
     Active Substance: CHOLECALCIFEROL
     Indication: PRODUCT USED FOR UNKNOWN INDICATION
     Dosage: CAPSULE, 25000 EENHEDEN
     Route: 065
  4. SIMVASTATINE [Concomitant]
     Active Substance: SIMVASTATIN
     Indication: PRODUCT USED FOR UNKNOWN INDICATION
     Dosage: FILMOMHULDE TABLET, 20 MG (MILLIGRAM)
     Route: 065
  5. ASCAL [Concomitant]
     Indication: PRODUCT USED FOR UNKNOWN INDICATION
     Dosage: ZAKJE (POEDER), 100 MG (MILLIGRAM)
     Route: 065

REACTIONS (1)
  - Dyspnoea [Recovering/Resolving]
